FAERS Safety Report 4359292-X (Version None)
Quarter: 2004Q2

REPORT INFORMATION
  Report Type: 
  Country: None (occurrence: None)
  Receive Date: 20040512
  Receipt Date: 20040428
  Transmission Date: 20050107
  Serious: Yes (Hospitalization)
  Sender: FDA-Public Use
  Company Number: 2004SE02404

PATIENT
  Age: 57 Year
  Sex: Male
  Weight: 72 kg

DRUGS (14)
  1. ATACAND [Suspect]
     Indication: DIABETIC NEPHROPATHY
     Dates: start: 20040228, end: 20040322
  2. ATACAND [Suspect]
     Indication: DIABETIC NEPHROPATHY
     Dates: start: 20040323
  3. ATACAND [Suspect]
     Indication: DIABETIC NEPHROPATHY
     Dates: start: 20040410
  4. SELECTOL [Concomitant]
  5. ALLOPURINOL TAB [Concomitant]
  6. ITOROL [Concomitant]
  7. CARDENALIN [Concomitant]
  8. ADALAT [Concomitant]
  9. NATRIX [Concomitant]
  10. GASTER [Concomitant]
  11. ADALAT [Concomitant]
  12. AMARYL [Concomitant]
  13. NOVORAPID [Concomitant]
  14. GLYBURIDE [Concomitant]

REACTIONS (4)
  - BLOOD PRESSURE INCREASED [None]
  - BRAIN STEM INFARCTION [None]
  - DIABETES MELLITUS INADEQUATE CONTROL [None]
  - DRUG EFFECT DECREASED [None]
